FAERS Safety Report 10063046 (Version 1)
Quarter: 2014Q2

REPORT INFORMATION
  Report Type: Spontaneous
  Country: DE (occurrence: DE)
  Receive Date: 20140407
  Receipt Date: 20140407
  Transmission Date: 20141212
  Serious: Yes (Other)
  Sender: FDA-Public Use
  Company Number: DE-BAXTER-2014BAX016159

PATIENT
  Age: 9 Year
  Sex: Male

DRUGS (7)
  1. KIOVIG (1 G/10 ML) [Suspect]
     Indication: DERMATOMYOSITIS
     Route: 065
  2. KIOVIG (1 G/10 ML) [Suspect]
     Indication: OFF LABEL USE
  3. METHOTREXATE [Suspect]
     Indication: DERMATOMYOSITIS
     Route: 065
  4. MYCOPHENOLATE MOFETIL [Suspect]
     Indication: DERMATOMYOSITIS
     Route: 065
  5. RITUXIMAB [Suspect]
     Indication: DERMATOMYOSITIS
     Route: 065
  6. INFLIXIMAB [Suspect]
     Indication: DERMATOMYOSITIS
     Route: 065
  7. TOCILIZUMAB [Suspect]
     Indication: DERMATOMYOSITIS
     Route: 065

REACTIONS (3)
  - Dermatitis [Unknown]
  - Myositis [Unknown]
  - Calcinosis [Unknown]
